FAERS Safety Report 7846465-4 (Version None)
Quarter: 2011Q4

REPORT INFORMATION
  Report Type: 
  Country: None (occurrence: None)
  Receive Date: 20111025
  Receipt Date: 20111025
  Transmission Date: 20120403
  Serious: Yes (Other)
  Sender: FDA-Public Use
  Company Number: None

PATIENT
  Sex: Female
  Weight: 59.874 kg

DRUGS (2)
  1. VENLAFAXINE [Suspect]
     Indication: ANXIETY
     Dosage: 37.5 MG
     Route: 048
     Dates: start: 20090917, end: 20090921
  2. VENLAFAXINE [Suspect]
     Indication: DEPRESSION
     Dosage: 37.5 MG
     Route: 048
     Dates: start: 20090917, end: 20090921

REACTIONS (12)
  - PAIN [None]
  - INFLUENZA LIKE ILLNESS [None]
  - ARTHRALGIA [None]
  - DRUG DOSE OMISSION [None]
  - HEADACHE [None]
  - BALANCE DISORDER [None]
  - FALL [None]
  - DISORIENTATION [None]
  - EYE IRRITATION [None]
  - LETHARGY [None]
  - EYE DISORDER [None]
  - CONTUSION [None]
